FAERS Safety Report 14229730 (Version 1)
Quarter: 2017Q4

REPORT INFORMATION
  Report Type: Spontaneous
  Country: US (occurrence: None)
  Receive Date: 20171128
  Receipt Date: 20171128
  Transmission Date: 20180321
  Serious: Yes (Death)
  Sender: FDA-Public Use
  Company Number: None

PATIENT
  Age: 75 Year
  Sex: Male
  Weight: 70.31 kg

DRUGS (15)
  1. CARVEDILOL 6.25MG [Suspect]
     Active Substance: CARVEDILOL
     Indication: RHEUMATOID ARTHRITIS
  2. MELOXICAM. [Suspect]
     Active Substance: MELOXICAM
  3. CARVEDILOL 12.5MG [Suspect]
     Active Substance: CARVEDILOL
  4. FOLIC ACID. [Concomitant]
     Active Substance: FOLIC ACID
  5. TRAMADOL HCL [Concomitant]
     Active Substance: TRAMADOL HYDROCHLORIDE
  6. PRAVASTATIN. [Concomitant]
     Active Substance: PRAVASTATIN
  7. CARVEDILOL 6.25MG [Suspect]
     Active Substance: CARVEDILOL
     Indication: HYPERTENSION
  8. BABY ASPIRIN [Concomitant]
     Active Substance: ASPIRIN
  9. METHOTREXATE. [Concomitant]
     Active Substance: METHOTREXATE
  10. PREDNISONE. [Concomitant]
     Active Substance: PREDNISONE
  11. ENALPRIL [Concomitant]
  12. LUTEIN [Concomitant]
     Active Substance: LUTEIN
  13. NIFEDIPINE 60MG [Suspect]
     Active Substance: NIFEDIPINE
  14. VITAMIN D [Concomitant]
     Active Substance: CHOLECALCIFEROL
  15. SERTRALINE HCL [Concomitant]
     Active Substance: SERTRALINE HYDROCHLORIDE

REACTIONS (5)
  - Intracranial aneurysm [None]
  - Headache [None]
  - Muscular weakness [None]
  - Heart rate irregular [None]
  - Sudden death [None]

NARRATIVE: CASE EVENT DATE: 20171014
